FAERS Safety Report 20939646 (Version 1)
Quarter: 2022Q2

REPORT INFORMATION
  Report Type: Spontaneous
  Country: US (occurrence: None)
  Receive Date: 20220609
  Receipt Date: 20220609
  Transmission Date: 20220721
  Serious: Yes (Hospitalization)
  Sender: FDA-Public Use
  Company Number: None

PATIENT
  Sex: Female

DRUGS (1)
  1. STELARA [Suspect]
     Active Substance: USTEKINUMAB
     Indication: Crohn^s disease
     Dosage: 90 MG  EVERY 6 WEEKS SUBCUTANEOUSLY?
     Route: 058
     Dates: start: 20220504

REACTIONS (3)
  - Weight decreased [None]
  - Vomiting [None]
  - Hypophagia [None]
